FAERS Safety Report 8175026-5 (Version None)
Quarter: 2012Q1

REPORT INFORMATION
  Report Type: 
  Country: None (occurrence: None)
  Receive Date: 20120229
  Receipt Date: 20120221
  Transmission Date: 20120608
  Serious: Yes (Other)
  Sender: FDA-Public Use
  Company Number: PHHY2012CA010729

PATIENT
  Sex: Female

DRUGS (10)
  1. ASCORBIC ACID [Concomitant]
  2. TOBI [Suspect]
     Indication: CYSTIC FIBROSIS
     Dosage: 112 MG, BID
     Dates: start: 20111109
  3. AZITHROMYCIN [Concomitant]
  4. VENTOLIN [Concomitant]
  5. SALINE [Concomitant]
  6. CREON [Concomitant]
  7. VITAMIN E [Concomitant]
  8. FLINTSTONES [Concomitant]
  9. VITAMIN D [Concomitant]
  10. PULMICORT-100 [Concomitant]

REACTIONS (1)
  - DYSPNOEA [None]
